FAERS Safety Report 25553788 (Version 2)
Quarter: 2025Q3

REPORT INFORMATION
  Report Type: Report from Study
  Country: EU (occurrence: EU)
  Receive Date: 20250715
  Receipt Date: 20250718
  Transmission Date: 20251021
  Serious: Yes (Other)
  Sender: MYLAN
  Company Number: EU-MYLANLABS-2025M1057974

PATIENT
  Age: 62 Year
  Sex: Male

DRUGS (16)
  1. REMIFENTANIL [Interacting]
     Active Substance: REMIFENTANIL
     Indication: Anaesthesia
  2. REMIFENTANIL [Interacting]
     Active Substance: REMIFENTANIL
     Route: 042
  3. REMIFENTANIL [Interacting]
     Active Substance: REMIFENTANIL
     Route: 042
  4. REMIFENTANIL [Interacting]
     Active Substance: REMIFENTANIL
  5. FENTANYL [Interacting]
     Active Substance: FENTANYL
     Indication: Anaesthesia
  6. FENTANYL [Interacting]
     Active Substance: FENTANYL
     Route: 042
  7. FENTANYL [Interacting]
     Active Substance: FENTANYL
     Route: 042
  8. FENTANYL [Interacting]
     Active Substance: FENTANYL
  9. IMIPRAMINE [Interacting]
     Active Substance: IMIPRAMINE
     Indication: Neuralgia
  10. IMIPRAMINE [Interacting]
     Active Substance: IMIPRAMINE
     Route: 065
  11. IMIPRAMINE [Interacting]
     Active Substance: IMIPRAMINE
     Route: 065
  12. IMIPRAMINE [Interacting]
     Active Substance: IMIPRAMINE
  13. PROPOFOL [Interacting]
     Active Substance: PROPOFOL
     Indication: Anaesthesia
  14. PROPOFOL [Interacting]
     Active Substance: PROPOFOL
     Route: 042
  15. PROPOFOL [Interacting]
     Active Substance: PROPOFOL
     Route: 042
  16. PROPOFOL [Interacting]
     Active Substance: PROPOFOL

REACTIONS (2)
  - Hypotension [Unknown]
  - Drug interaction [Unknown]
